FAERS Safety Report 4748309-6 (Version None)
Quarter: 2005Q3

REPORT INFORMATION
  Report Type: 
  Country: None (occurrence: None)
  Receive Date: 20050818
  Receipt Date: 20050714
  Transmission Date: 20060218
  Serious: Yes (Hospitalization)
  Sender: FDA-Public Use
  Company Number: US-MERCK-0507USA01977

PATIENT
  Age: 50 Year
  Sex: Female
  Weight: 61 kg

DRUGS (14)
  1. SINGULAIR [Suspect]
     Route: 048
     Dates: start: 20050513, end: 20050523
  2. PAXIL [Concomitant]
     Route: 065
  3. KLONOPIN [Concomitant]
     Route: 065
  4. DOXEPIN HYDROCHLORIDE [Concomitant]
     Indication: PRURITUS
     Route: 065
  5. DOXEPIN HYDROCHLORIDE [Concomitant]
     Route: 065
  6. HYDROXYZINE HYDROCHLORIDE [Concomitant]
     Indication: PRURITUS
     Route: 065
  7. TRIAMCINOLONE [Concomitant]
     Route: 065
  8. ALLEGRA-D [Concomitant]
     Route: 065
  9. ESTRACE [Concomitant]
     Route: 048
  10. IMITREX [Concomitant]
     Route: 065
  11. ACTONEL [Concomitant]
     Route: 065
  12. AURALGAN [Concomitant]
     Indication: EAR PAIN
     Route: 001
     Dates: start: 20050501
  13. AURALGAN [Concomitant]
     Indication: EAR DISCOMFORT
     Route: 001
     Dates: start: 20050501
  14. [THERAPY UNSPECIFIED] [Concomitant]
     Indication: RASH
     Route: 061

REACTIONS (15)
  - ARTHRALGIA [None]
  - CONTUSION [None]
  - DIZZINESS [None]
  - ECCHYMOSIS [None]
  - FACIAL BONES FRACTURE [None]
  - FALL [None]
  - HEADACHE [None]
  - HYPOAESTHESIA [None]
  - INSOMNIA [None]
  - LOSS OF CONSCIOUSNESS [None]
  - MALNUTRITION [None]
  - MALOCCLUSION [None]
  - MOUTH INJURY [None]
  - SYNCOPE [None]
  - TIC [None]
